FAERS Safety Report 8027780-0 (Version None)
Quarter: 2012Q1

REPORT INFORMATION
  Report Type: 
  Country: None (occurrence: None)
  Receive Date: 20120104
  Receipt Date: 20111220
  Transmission Date: 20120608
  Serious: Yes (Hospitalization)
  Sender: FDA-Public Use
  Company Number: US-2011-10952

PATIENT
  Age: 50 Year
  Sex: Male

DRUGS (3)
  1. BUSULFAN [Suspect]
     Dosage: 0.8 MG/KG, TID, INTRAVENOUS
     Route: 042
     Dates: start: 20110304, end: 20110305
  2. THYMOGLOBULIN [Suspect]
     Dosage: 200 MG MILLIGRAM(S), QD, INTRAVENOUS
     Route: 042
     Dates: start: 20110304, end: 20110305
  3. FLUDARABINE PHOSPHATE [Concomitant]

REACTIONS (1)
  - HEPATITIS ACUTE [None]
